FAERS Safety Report 8953786 (Version 4)
Quarter: 2013Q3

REPORT INFORMATION
  Report Type: Report from Study
  Country: US (occurrence: US)
  Receive Date: 20121206
  Receipt Date: 20130809
  Transmission Date: 20140515
  Serious: Yes (Life-Threatening, Other)
  Sender: FDA-Public Use
  Company Number: US-ABBOTT-12P-163-1016137-00

PATIENT
  Age: 57 Year
  Sex: Female
  Weight: 68.1 kg

DRUGS (10)
  1. HUMIRA [Suspect]
     Indication: PSORIASIS
     Dosage: INITIAL DOSE
     Route: 058
     Dates: start: 20110322, end: 20110322
  2. HUMIRA [Suspect]
     Route: 058
  3. CLOBETASOL [Concomitant]
     Indication: PSORIASIS
     Dosage: 2-3 GTT
     Route: 061
     Dates: start: 2011
  4. TRIAMCINOLONE ACETATE [Concomitant]
     Indication: PSORIASIS
     Route: 061
     Dates: start: 20120210
  5. GEMFIBROZIL [Concomitant]
     Indication: HYPERLIPIDAEMIA
  6. METFORMIN [Concomitant]
     Indication: DIABETES MELLITUS
     Dates: start: 2010
  7. SALBUTAMOL [Concomitant]
     Indication: CHRONIC OBSTRUCTIVE PULMONARY DISEASE
     Route: 055
  8. THEOPHYLLINE [Concomitant]
  9. SPIRIVA [Concomitant]
     Indication: CHRONIC OBSTRUCTIVE PULMONARY DISEASE
  10. ADVIL [Concomitant]
     Indication: ARTHRALGIA

REACTIONS (1)
  - Non-small cell lung cancer metastatic [Not Recovered/Not Resolved]
